FAERS Safety Report 5877926-5 (Version None)
Quarter: 2008Q3

REPORT INFORMATION
  Report Type: 
  Country: None (occurrence: None)
  Receive Date: 20080911
  Receipt Date: 20080904
  Transmission Date: 20090109
  Serious: Yes (Other)
  Sender: FDA-Public Use
  Company Number: B0522692A

PATIENT
  Age: 33 Year
  Sex: Female
  Weight: 70.7 kg

DRUGS (7)
  1. BLINDED VACCINE [Suspect]
     Route: 030
     Dates: start: 20060925, end: 20060925
  2. AMOXICILLIN [Suspect]
     Indication: TOOTHACHE
     Route: 048
     Dates: start: 20080508, end: 20080516
  3. MEFENAMIC ACID [Suspect]
     Indication: TOOTHACHE
     Route: 048
     Dates: start: 20080508, end: 20080516
  4. DMPA [Concomitant]
     Indication: CONTRACEPTION
     Route: 030
     Dates: start: 20060404, end: 20060607
  5. AMOXICILLIN [Concomitant]
     Indication: TOOTH EXTRACTION
     Route: 048
     Dates: start: 20060408, end: 20060408
  6. TRUST PILL [Concomitant]
     Indication: CONTRACEPTION
     Route: 048
     Dates: start: 20060627, end: 20070128
  7. AMOXICILLIN [Concomitant]
     Indication: UPPER RESPIRATORY TRACT INFECTION
     Route: 048
     Dates: start: 20080124, end: 20080130

REACTIONS (8)
  - ABDOMINAL PAIN LOWER [None]
  - ABORTION SPONTANEOUS [None]
  - ABORTION SPONTANEOUS COMPLETE [None]
  - ABORTION THREATENED [None]
  - ASTHENIA [None]
  - DRUG EXPOSURE DURING PREGNANCY [None]
  - VAGINAL DISCHARGE [None]
  - VAGINAL HAEMORRHAGE [None]
